FAERS Safety Report 4706462-4 (Version None)
Quarter: 2005Q3

REPORT INFORMATION
  Report Type: 
  Country: None (occurrence: None)
  Receive Date: 20050705
  Receipt Date: 20030505
  Transmission Date: 20060218
  Serious: Yes (Hospitalization)
  Sender: FDA-Public Use
  Company Number: FR-GLAXOSMITHKLINE-B0299312A

PATIENT
  Age: 80 Year
  Sex: Male
  Weight: 60 kg

DRUGS (6)
  1. ZOVIRAX [Suspect]
     Indication: ILL-DEFINED DISORDER
     Dosage: 1UNIT FOUR TIMES PER DAY
     Route: 065
     Dates: end: 20030102
  2. FRAXIPARINE [Suspect]
     Dosage: 7500UNIT PER DAY
     Route: 058
     Dates: end: 20030122
  3. VECTARION [Suspect]
     Dosage: 1UNIT THREE TIMES PER DAY
     Route: 048
     Dates: end: 20030108
  4. OXEOL [Suspect]
     Dosage: 1UNIT PER DAY
     Route: 048
  5. ZYPREXA [Suspect]
     Dosage: 1UNIT PER DAY
     Route: 048
     Dates: end: 20030108
  6. ARICEPT [Suspect]
     Dosage: 1UNIT PER DAY
     Route: 048
     Dates: end: 20030110

REACTIONS (1)
  - BRONCHOPNEUMOPATHY [None]
